FAERS Safety Report 21046468 (Version 1)
Quarter: 2022Q3

REPORT INFORMATION
  Report Type: Spontaneous
  Country: US (occurrence: US)
  Receive Date: 20220706
  Receipt Date: 20220706
  Transmission Date: 20221027
  Serious: No
  Sender: FDA-Public Use
  Company Number: US-ALLERGAN-2217999US

PATIENT
  Sex: Female

DRUGS (5)
  1. UBRELVY [Suspect]
     Active Substance: UBROGEPANT
     Indication: Migraine
     Dosage: 100 MG AS NEEDED
  2. AMBIEN [Concomitant]
     Active Substance: ZOLPIDEM TARTRATE
     Indication: Insomnia
     Dosage: 5 MG ONCE AT BEDTIME
  3. FIORICET [Concomitant]
     Active Substance: ACETAMINOPHEN\BUTALBITAL\CAFFEINE
     Indication: Migraine
  4. MAXALT [Concomitant]
     Active Substance: RIZATRIPTAN BENZOATE
  5. NAPROXEN [Concomitant]
     Active Substance: NAPROXEN

REACTIONS (1)
  - Arrhythmia [Not Recovered/Not Resolved]
